FAERS Safety Report 22165887 (Version 2)
Quarter: 2023Q2

REPORT INFORMATION
  Report Type: Spontaneous
  Country: CA (occurrence: None)
  Receive Date: 20230403
  Receipt Date: 20230518
  Transmission Date: 20230722
  Serious: Yes (Other)
  Sender: FDA-Public Use
  Company Number: CA-PFIZER INC-202300138075

PATIENT
  Age: 51 Year
  Sex: Male

DRUGS (9)
  1. METHOTREXATE [Suspect]
     Active Substance: METHOTREXATE
     Indication: Product used for unknown indication
     Route: 048
     Dates: start: 201711, end: 2019
  2. METHOTREXATE [Suspect]
     Active Substance: METHOTREXATE
     Route: 065
  3. METHOTREXATE [Suspect]
     Active Substance: METHOTREXATE
     Dosage: DOSE INCREASED
     Route: 065
     Dates: start: 201802, end: 2019
  4. IRON [Concomitant]
     Active Substance: IRON
     Route: 065
  5. CANNABIDIOL\HERBALS [Concomitant]
     Active Substance: CANNABIDIOL\HERBALS
     Dosage: UNK
     Route: 065
  6. FISH OIL [Concomitant]
     Active Substance: FISH OIL
     Route: 065
  7. OREGANO [Concomitant]
     Active Substance: OREGANO
     Route: 065
  8. FOLIC ACID [Concomitant]
     Active Substance: FOLIC ACID
     Route: 065
     Dates: start: 201711
  9. FOLIC ACID [Concomitant]
     Active Substance: FOLIC ACID
     Dosage: DOSE INCREASED
     Route: 065
     Dates: start: 201802, end: 2019

REACTIONS (6)
  - Crohn^s disease [Unknown]
  - Drug ineffective [Unknown]
  - Platelet count increased [Unknown]
  - White blood cell count increased [Unknown]
  - Gastrointestinal sounds abnormal [Unknown]
  - Renal disorder [Not Recovered/Not Resolved]
